FAERS Safety Report 5341331-0 (Version None)
Quarter: 2007Q2

REPORT INFORMATION
  Report Type: 
  Country: None (occurrence: None)
  Receive Date: 20070530
  Receipt Date: 20070516
  Transmission Date: 20071010
  Serious: Yes (Other)
  Sender: FDA-Public Use
  Company Number: IMP_02912_2007

PATIENT
  Sex: Male

DRUGS (2)
  1. BUDEPRION 300 MG [Suspect]
     Indication: NECK PAIN
  2. CYMBALTA [Suspect]

REACTIONS (8)
  - CHEST PAIN [None]
  - DEPRESSION [None]
  - HYPERHIDROSIS [None]
  - NAUSEA [None]
  - NIGHTMARE [None]
  - PALPITATIONS [None]
  - PHARMACEUTICAL PRODUCT COMPLAINT [None]
  - SUICIDAL IDEATION [None]
